FAERS Safety Report 5045964-0 (Version None)
Quarter: 2006Q3

REPORT INFORMATION
  Report Type: 
  Country: None (occurrence: None)
  Receive Date: 20060710
  Receipt Date: 20060607
  Transmission Date: 20061208
  Serious: Yes (Other)
  Sender: FDA-Public Use
  Company Number: JP-AVENTIS-200612028JP

PATIENT
  Age: 35 Year
  Sex: Female

DRUGS (1)
  1. LASIX [Suspect]

REACTIONS (1)
  - PSEUDO-BARTTER SYNDROME [None]
